FAERS Safety Report 24559031 (Version 1)
Quarter: 2024Q4

REPORT INFORMATION
  Report Type: Other
  Country: CN (occurrence: CN)
  Receive Date: 20241029
  Receipt Date: 20241029
  Transmission Date: 20250115
  Serious: Yes (Other)
  Sender: QILU PHARMACEUTICAL
  Company Number: CN-QILU PHARMACEUTICAL CO.LTD.-QLU-000282-2024

PATIENT
  Age: 70 Year
  Sex: Male
  Weight: 60 kg

DRUGS (3)
  1. CISPLATIN [Suspect]
     Active Substance: CISPLATIN
     Indication: Tongue neoplasm malignant stage unspecified
     Dosage: 40 MG QD ON D1-2 AS THIRD CYCLE
     Route: 041
     Dates: start: 20240819, end: 20240820
  2. CISPLATIN [Suspect]
     Active Substance: CISPLATIN
     Dosage: 20 MG QD ON D3
     Route: 041
     Dates: start: 20240821, end: 20240821
  3. PACLITAXEL [Suspect]
     Active Substance: PACLITAXEL
     Indication: Tongue neoplasm malignant stage unspecified
     Dosage: 300MG
     Route: 065
     Dates: start: 20240819

REACTIONS (2)
  - Mouth ulceration [Not Recovered/Not Resolved]
  - Off label use [Recovered/Resolved]

NARRATIVE: CASE EVENT DATE: 20241010
